FAERS Safety Report 4751515-8 (Version None)
Quarter: 2005Q3

REPORT INFORMATION
  Report Type: 
  Country: None (occurrence: None)
  Receive Date: 20050822
  Receipt Date: 20050809
  Transmission Date: 20060218
  Serious: Yes (Other)
  Sender: FDA-Public Use
  Company Number: GBWYE891010AUG05

PATIENT
  Age: 39 Year
  Sex: Male

DRUGS (3)
  1. LODINE [Suspect]
     Indication: ANKYLOSING SPONDYLITIS
     Dosage: 600 MG ORAL
     Route: 048
     Dates: start: 20041006, end: 20050713
  2. CO-PROXAMOL (DEXTROPROPOXYPHENE HYDROCHLORIDE/PARACETAMOL) [Concomitant]
  3. DICLOFENAC [Concomitant]

REACTIONS (1)
  - CHEST PAIN [None]
